FAERS Safety Report 16091424 (Version 3)
Quarter: 2020Q4

REPORT INFORMATION
  Report Type: Report from Study
  Country: US (occurrence: US)
  Receive Date: 20190319
  Receipt Date: 20201225
  Transmission Date: 20210113
  Serious: No
  Sender: FDA-Public Use
  Company Number: US-SA-2019SA070757

PATIENT

DRUGS (2)
  1. DUPILUMAB [Suspect]
     Active Substance: DUPILUMAB
     Dosage: 300 MG, QOW
     Route: 058
     Dates: start: 2017, end: 20201127
  2. DUPILUMAB [Suspect]
     Active Substance: DUPILUMAB
     Indication: DERMATITIS ATOPIC
     Dosage: UNK
     Route: 058
     Dates: start: 2017

REACTIONS (10)
  - Dry skin [Unknown]
  - Eyelid exfoliation [Not Recovered/Not Resolved]
  - Ocular hyperaemia [Unknown]
  - Skin fissures [Unknown]
  - Eye pruritus [Not Recovered/Not Resolved]
  - Skin exfoliation [Unknown]
  - Pruritus [Recovered/Resolved]
  - Eyelid thickening [Not Recovered/Not Resolved]
  - Conjunctivitis [Unknown]
  - Lacrimation increased [Not Recovered/Not Resolved]

NARRATIVE: CASE EVENT DATE: 2017
